FAERS Safety Report 8167662-7 (Version None)
Quarter: 2012Q1

REPORT INFORMATION
  Report Type: 
  Country: None (occurrence: None)
  Receive Date: 20120227
  Receipt Date: 20120220
  Transmission Date: 20120608
  Serious: Yes (Other)
  Sender: FDA-Public Use
  Company Number: US-AMGEN-USASP2011044759

PATIENT
  Age: 90 Year
  Sex: Female
  Weight: 48.526 kg

DRUGS (4)
  1. CITRICAL [Concomitant]
     Dosage: UNK
     Dates: start: 20110503
  2. PROLIA [Suspect]
     Indication: OSTEOPOROSIS
     Dosage: UNK UNK, ONE TIME DOSE
     Route: 030
     Dates: start: 20110607, end: 20110607
  3. VITAMIN D [Concomitant]
     Dosage: UNK
     Dates: start: 20110503
  4. PROPRANOLOL [Concomitant]
     Dosage: UNK

REACTIONS (4)
  - URTICARIA [None]
  - RASH ERYTHEMATOUS [None]
  - INCORRECT ROUTE OF DRUG ADMINISTRATION [None]
  - HYPERSENSITIVITY [None]
